FAERS Safety Report 11232599 (Version 1)
Quarter: 2015Q3

REPORT INFORMATION
  Report Type: Spontaneous
  Country: US (occurrence: US)
  Receive Date: 20150701
  Receipt Date: 20150701
  Transmission Date: 20151125
  Serious: Yes (Other)
  Sender: FDA-Public Use
  Company Number: US-BAUSCH-BL-2015-016164

PATIENT
  Age: 66 Year
  Sex: Female
  Weight: 68.1 kg

DRUGS (1)
  1. PURPOSE DUAL TREATMENT MOISTURE SUNSCREEN SPF 15 [Suspect]
     Active Substance: OCTINOXATE\OCTISALATE\OXYBENZONE
     Indication: THERAPEUTIC SKIN CARE TOPICAL
     Dosage: 4 FL OZ
     Route: 061

REACTIONS (1)
  - Basal cell carcinoma [Recovered/Resolved]

NARRATIVE: CASE EVENT DATE: 201505
